FAERS Safety Report 4617029-0 (Version None)
Quarter: 2005Q1

REPORT INFORMATION
  Report Type: 
  Country: None (occurrence: None)
  Receive Date: 20050321
  Receipt Date: 20050311
  Transmission Date: 20050727
  Serious: Yes (Other)
  Sender: FDA-Public Use
  Company Number: HQWYE027025OCT04

PATIENT
  Age: 42 Year
  Sex: Male

DRUGS (6)
  1. CONTROLOC                         (PANTOPRAZOLE, DELAYED RELEASE) [Suspect]
     Indication: GASTROOESOPHAGEAL REFLUX DISEASE
     Dosage: 40 MG 1X PER 1 DAY ORAL
     Route: 048
     Dates: start: 20040201
  2. ZYRTEC [Suspect]
     Indication: RHINITIS
     Dosage: 10 MG ORAL
     Route: 048
  3. ZYRTEC [Suspect]
     Indication: RHINITIS ALLERGIC
     Dosage: 10 MG ORAL
     Route: 048
  4. METOPROLOL TARTRATE [Concomitant]
  5. AIROL (TRETINOIN) [Concomitant]
  6. RETIN A (TRETINOIN) [Concomitant]

REACTIONS (1)
  - ELECTROCARDIOGRAM QT PROLONGED [None]
